FAERS Safety Report 11104891 (Version 2)
Quarter: 2015Q2

REPORT INFORMATION
  Report Type: Report from Study
  Country: DE (occurrence: DE)
  Receive Date: 20150511
  Receipt Date: 20150604
  Transmission Date: 20150821
  Serious: Yes (Death)
  Sender: FDA-Public Use
  Company Number: PHHY2015DE056281

PATIENT
  Sex: Female
  Weight: 51.5 kg

DRUGS (4)
  1. EXEMESTANE. [Concomitant]
     Active Substance: EXEMESTANE
     Indication: BREAST CANCER METASTATIC
     Dosage: 25 MG, ONCE DAILY
     Route: 048
     Dates: start: 20130426, end: 20130820
  2. AFINITOR [Suspect]
     Active Substance: EVEROLIMUS
     Dosage: 10.0 MG, ONCE DAILY
     Route: 048
     Dates: start: 20130511, end: 20130604
  3. AFINITOR [Suspect]
     Active Substance: EVEROLIMUS
     Dosage: 10.0 MG, ONCE DAILY
     Route: 048
     Dates: start: 20130702, end: 20130820
  4. AFINITOR [Suspect]
     Active Substance: EVEROLIMUS
     Indication: BREAST CANCER METASTATIC
     Dosage: 5.0 MG, ONCE DAILY
     Route: 048
     Dates: start: 20130426, end: 20130510

REACTIONS (2)
  - Ileus [Fatal]
  - General physical health deterioration [Fatal]

NARRATIVE: CASE EVENT DATE: 20140610
